FAERS Safety Report 18899078 (Version 1)
Quarter: 2021Q1

REPORT INFORMATION
  Report Type: Spontaneous
  Country: US (occurrence: US)
  Receive Date: 20210216
  Receipt Date: 20210216
  Transmission Date: 20210420
  Serious: No
  Sender: FDA-Public Use
  Company Number: US-BAYER-2021-058546

PATIENT
  Age: 83 Year
  Sex: Female

DRUGS (1)
  1. ALEVE PM [Suspect]
     Active Substance: DIPHENHYDRAMINE HYDROCHLORIDE\NAPROXEN SODIUM
     Indication: PAIN
     Dosage: 1 DF
     Route: 048

REACTIONS (4)
  - Expired product administered [None]
  - Product use in unapproved indication [None]
  - Abdominal discomfort [None]
  - Gastrooesophageal reflux disease [None]
